FAERS Safety Report 4359814-9 (Version None)
Quarter: 2004Q2

REPORT INFORMATION
  Report Type: 
  Country: None (occurrence: None)
  Receive Date: 20040514
  Receipt Date: 20040505
  Transmission Date: 20050107
  Serious: Yes (Hospitalization)
  Sender: FDA-Public Use
  Company Number: FR-JNJFOC-20040500722

PATIENT
  Age: 39 Year
  Sex: Male

DRUGS (5)
  1. HALDOL [Suspect]
     Indication: PSYCHOTIC DISORDER
     Dosage: INTRA-MUSCULAR
     Route: 030
  2. LEPTICUR (TROPATEPINE HYDROCHLORIDE) CAPSULES [Suspect]
     Dosage: 1 DOSE(S), IN 1 DAY, ORAL
     Route: 048
  3. REBETOL [Suspect]
     Indication: HEPATITIS C
     Dosage: 800  MG, IN 1 DAY, ORAL
     Route: 048
     Dates: start: 20031014
  4. PEGASYS [Suspect]
     Indication: HEPATITIS C
     Dosage: 90 MG, IN 1 DAY, SUBCUTANEOUS
     Route: 058
     Dates: start: 20040106, end: 20040324
  5. NOZINAN (LEVOMEPROMAZINE) [Suspect]
     Indication: PSYCHOTIC DISORDER
     Dosage: 50 MG, IN 1 DAY, ORAL
     Route: 048

REACTIONS (1)
  - THROMBOCYTOPENIA [None]
